FAERS Safety Report 4649277-8 (Version None)
Quarter: 2005Q2

REPORT INFORMATION
  Report Type: 
  Country: None (occurrence: None)
  Receive Date: 20050429
  Receipt Date: 20050204
  Transmission Date: 20051028
  Serious: Yes (Other)
  Sender: FDA-Public Use
  Company Number: US-MERCK-0502USA00646

PATIENT
  Age: 49 Year
  Sex: Male
  Weight: 75 kg

DRUGS (2)
  1. VIOXX [Suspect]
     Indication: ARTHRITIS
     Route: 048
     Dates: start: 20020402, end: 20040628
  2. VIOXX [Suspect]
     Indication: ARTHRALGIA
     Route: 048
     Dates: start: 20020402, end: 20040628

REACTIONS (3)
  - CARDIAC DISORDER [None]
  - GASTRIC ULCER [None]
  - MYOCARDIAL INFARCTION [None]
